FAERS Safety Report 20618016 (Version 1)
Quarter: 2022Q1

REPORT INFORMATION
  Report Type: Spontaneous
  Country: DE (occurrence: None)
  Receive Date: 20220321
  Receipt Date: 20220321
  Transmission Date: 20220423
  Serious: Yes (Hospitalization, Disabling)
  Sender: FDA-Public Use
  Company Number: None

PATIENT
  Age: 29 Year
  Sex: Female
  Weight: 53 kg

DRUGS (1)
  1. FOSFOMYCIN [Suspect]
     Active Substance: FOSFOMYCIN
     Indication: Antibiotic prophylaxis
     Dosage: OTHER FREQUENCY : ONE TIME DOSE;?
     Route: 048
     Dates: start: 20210214, end: 20210214

REACTIONS (5)
  - Pruritus [None]
  - Maternal exposure during pregnancy [None]
  - Foetal exposure during pregnancy [None]
  - Immunosuppressant drug therapy [None]
  - Skin disorder [None]

NARRATIVE: CASE EVENT DATE: 20210214
